FAERS Safety Report 15147307 (Version 1)
Quarter: 2018Q3

REPORT INFORMATION
  Report Type: Spontaneous
  Country: GB (occurrence: GB)
  Receive Date: 20180716
  Receipt Date: 20180716
  Transmission Date: 20181010
  Serious: Yes (Other)
  Sender: FDA-Public Use
  Company Number: GB-TEVA-2018-GB-926026

PATIENT
  Age: 20 Year
  Sex: Female
  Weight: 66 kg

DRUGS (4)
  1. CODEINE [Concomitant]
     Active Substance: CODEINE
  2. PHENOXYMETHYLPENICILLIN [Suspect]
     Active Substance: PENICILLIN V
     Indication: TONSILLITIS
     Dosage: 2000 MILLIGRAM DAILY;
     Route: 048
     Dates: start: 20180529, end: 20180608
  3. IBUPROFEN. [Concomitant]
     Active Substance: IBUPROFEN
  4. PARACETAMOL [Concomitant]
     Active Substance: ACETAMINOPHEN

REACTIONS (3)
  - Abdominal pain upper [Not Recovered/Not Resolved]
  - Diarrhoea [Not Recovered/Not Resolved]
  - Feeding disorder [Not Recovered/Not Resolved]

NARRATIVE: CASE EVENT DATE: 20180529
